FAERS Safety Report 11614248 (Version 1)
Quarter: 2015Q4

REPORT INFORMATION
  Report Type: Report from Study
  Country: US (occurrence: US)
  Receive Date: 20151008
  Receipt Date: 20151008
  Transmission Date: 20160304
  Serious: No
  Sender: FDA-Public Use
  Company Number: US-AMGEN-USASL2015103215

PATIENT
  Age: 58 Year
  Sex: Male

DRUGS (1)
  1. ENBREL [Suspect]
     Active Substance: ETANERCEPT
     Indication: PSORIASIS
     Dosage: 50 MG ONCE EVERY 5 DAYS
     Route: 065
     Dates: start: 20150212

REACTIONS (3)
  - Intentional product misuse [Unknown]
  - Cough [Unknown]
  - Psoriasis [Unknown]

NARRATIVE: CASE EVENT DATE: 2015
